FAERS Safety Report 6049365-8 (Version None)
Quarter: 2009Q1

REPORT INFORMATION
  Report Type: 
  Country: None (occurrence: None)
  Receive Date: 20090123
  Receipt Date: 20090112
  Transmission Date: 20090719
  Serious: Yes (Other)
  Sender: FDA-Public Use
  Company Number: TH-PFIZER INC-2009157727

PATIENT

DRUGS (2)
  1. ZELDOX [Suspect]
     Indication: SCHIZOPHRENIA
     Route: 048
     Dates: start: 20060101
  2. DEPAKENE [Concomitant]
     Indication: CONVULSION
     Route: 048

REACTIONS (4)
  - CONVULSION [None]
  - MUSCLE SPASTICITY [None]
  - SOMNOLENCE [None]
  - SPEECH DISORDER [None]
